FAERS Safety Report 9254454 (Version 1)
Quarter: 2013Q2

REPORT INFORMATION
  Report Type: Spontaneous
  Country: US (occurrence: None)
  Receive Date: 20130422
  Receipt Date: 20130422
  Transmission Date: 20140414
  Serious: Yes (Other)
  Sender: FDA-Public Use
  Company Number: None

PATIENT
  Age: 31 Year
  Sex: Female
  Weight: 120.2 kg

DRUGS (2)
  1. ESCITALOPRAM [Suspect]
     Indication: ANXIETY
     Route: 048
     Dates: start: 20130312, end: 20130421
  2. ESCITALOPRAM [Suspect]
     Indication: DEPRESSION
     Route: 048
     Dates: start: 20130312, end: 20130421

REACTIONS (12)
  - Anger [None]
  - Crying [None]
  - Anxiety [None]
  - Depression [None]
  - Feeling abnormal [None]
  - Sleep disorder [None]
  - Suicidal ideation [None]
  - Headache [None]
  - Nausea [None]
  - Vomiting [None]
  - Fatigue [None]
  - Therapeutic response unexpected with drug substitution [None]
